FAERS Safety Report 5963767-7 (Version None)
Quarter: 2008Q4

REPORT INFORMATION
  Report Type: 
  Country: None (occurrence: None)
  Receive Date: 20081120
  Receipt Date: 20081110
  Transmission Date: 20090506
  Serious: Yes (Hospitalization)
  Sender: FDA-Public Use
  Company Number: 310001K08SWE

PATIENT
  Age: 37 Year
  Sex: Female

DRUGS (2)
  1. GONAL-F [Suspect]
     Indication: INFERTILITY
     Dates: start: 20070201, end: 20070101
  2. MENOPUR [Concomitant]

REACTIONS (1)
  - DEEP VEIN THROMBOSIS [None]
